FAERS Safety Report 13301368 (Version 1)
Quarter: 2017Q1

REPORT INFORMATION
  Report Type: Spontaneous
  Country: IE (occurrence: US)
  Receive Date: 20170307
  Receipt Date: 20170307
  Transmission Date: 20170428
  Serious: Yes (Other)
  Sender: FDA-Public Use
  Company Number: None

PATIENT
  Age: 75 Year
  Sex: Female

DRUGS (1)
  1. XEPLION [Suspect]
     Active Substance: PALIPERIDONE PALMITATE
     Indication: SCHIZOPHRENIA
     Dosage: ?          QUANTITY:1 INJECTION(S);OTHER FREQUENCY:1 INJECTION;?
     Route: 030
     Dates: start: 20170213

REACTIONS (4)
  - Bradyphrenia [None]
  - Fine motor skill dysfunction [None]
  - Slow speech [None]
  - Gait disturbance [None]

NARRATIVE: CASE EVENT DATE: 20170213
